FAERS Safety Report 14427803 (Version 2)
Quarter: 2018Q2

REPORT INFORMATION
  Report Type: Spontaneous
  Country: DK (occurrence: DK)
  Receive Date: 20180123
  Receipt Date: 20180605
  Transmission Date: 20180711
  Serious: Yes (Hospitalization, Disabling, Other)
  Sender: FDA-Public Use
  Company Number: PHHY2017DK199464

PATIENT
  Age: 71 Year
  Sex: Male
  Weight: 84 kg

DRUGS (7)
  1. ATORVASTATIN [Suspect]
     Active Substance: ATORVASTATIN
     Indication: HYPERCHOLESTEROLAEMIA
     Dosage: STYRKE: 40 MG
     Route: 048
     Dates: start: 2012
  2. ATORVASTATIN [Suspect]
     Active Substance: ATORVASTATIN
     Dosage: 40 MG, UNK
     Route: 048
     Dates: start: 20140101
  3. PREDNISOLONE. [Suspect]
     Active Substance: PREDNISOLONE
     Indication: ADRENOCORTICAL STEROID THERAPY
     Dosage: 15 MG, QD
     Route: 065
  4. PREDNISOLONE. [Suspect]
     Active Substance: PREDNISOLONE
     Dosage: 200 MG,(DOSIS: 4 TABLETTER MORGEN, STRYKE: 50MG)
     Route: 048
     Dates: start: 20160408
  5. IMUREL [Concomitant]
     Active Substance: AZATHIOPRINE SODIUM
     Indication: PRODUCT USED FOR UNKNOWN INDICATION
     Dosage: UNK
     Route: 048
  6. AMLODIPIN [Concomitant]
     Active Substance: AMLODIPINE BESYLATE
     Indication: HYPERTENSION
     Dosage: UNK
     Route: 065
  7. ALLOPURINOL. [Concomitant]
     Active Substance: ALLOPURINOL
     Indication: GOUTY ARTHRITIS
     Dosage: 100 MG, QD
     Route: 048
     Dates: start: 20141222, end: 20160408

REACTIONS (12)
  - Cardiac disorder [Not Recovered/Not Resolved]
  - Fatigue [Recovering/Resolving]
  - Visual impairment [Unknown]
  - Decreased appetite [Recovered/Resolved]
  - Neuropathy peripheral [Not Recovered/Not Resolved]
  - Myalgia [Unknown]
  - Muscular weakness [Recovering/Resolving]
  - Immune-mediated necrotising myopathy [Not Recovered/Not Resolved]
  - Adverse event [Unknown]
  - Blood cholesterol increased [Unknown]
  - Areflexia [Not Recovered/Not Resolved]
  - Cushingoid [Unknown]

NARRATIVE: CASE EVENT DATE: 20160310
